FAERS Safety Report 8622711 (Version 3)
Quarter: 2014Q2

REPORT INFORMATION
  Report Type: Report from Study
  Country: IT (occurrence: IT)
  Receive Date: 20120619
  Receipt Date: 20140529
  Transmission Date: 20141212
  Serious: Yes (Death, Hospitalization)
  Sender: FDA-Public Use
  Company Number: IT-INCYTE CORPORATION-2012IN000945

PATIENT
  Sex: 0

DRUGS (3)
  1. INC424 [Suspect]
     Indication: MYELOFIBROSIS
     Dosage: UNK
     Route: 048
     Dates: end: 20120422
  2. INC424 [Suspect]
     Dosage: 15 MG, BID
     Route: 048
     Dates: start: 20120423, end: 20120508
  3. INC424 [Suspect]
     Dosage: 5 MG, BID
     Route: 048
     Dates: start: 20120509, end: 20120521

REACTIONS (8)
  - Acute myeloid leukaemia [Fatal]
  - Thrombocytopenia [Not Recovered/Not Resolved]
  - Asthenia [Not Recovered/Not Resolved]
  - Renal impairment [Fatal]
  - Oedema [Fatal]
  - Hypotension [Not Recovered/Not Resolved]
  - Cardiac failure [Fatal]
  - Leukocytosis [Not Recovered/Not Resolved]
